FAERS Safety Report 20029945 (Version 1)
Quarter: 2021Q4

REPORT INFORMATION
  Report Type: Spontaneous
  Country: US (occurrence: US)
  Receive Date: 20211103
  Receipt Date: 20211103
  Transmission Date: 20220304
  Serious: No
  Sender: FDA-Public Use
  Company Number: US-IGSA-BIG0016460

PATIENT
  Age: 50 Year
  Sex: Female
  Weight: 72.562 kg

DRUGS (6)
  1. GAMUNEX-C [Suspect]
     Active Substance: HUMAN IMMUNOGLOBULIN G
     Indication: Autoimmune disorder
     Dosage: 35 GRAM, Q.4WK.
     Route: 042
  2. GAMUNEX-C [Suspect]
     Active Substance: HUMAN IMMUNOGLOBULIN G
     Indication: Postural orthostatic tachycardia syndrome
     Dosage: 35 GRAM
     Route: 042
     Dates: start: 20210406
  3. GAMUNEX-C [Suspect]
     Active Substance: HUMAN IMMUNOGLOBULIN G
     Indication: Neuropathy peripheral
     Dosage: 35 GRAM
     Route: 042
     Dates: start: 202109
  4. GAMUNEX-C [Suspect]
     Active Substance: HUMAN IMMUNOGLOBULIN G
     Dosage: 35 GRAM
     Route: 042
     Dates: start: 202105
  5. SOLU-MEDROL [Concomitant]
     Active Substance: METHYLPREDNISOLONE SODIUM SUCCINATE
     Indication: Adverse drug reaction
  6. SOLU-MEDROL [Concomitant]
     Active Substance: METHYLPREDNISOLONE SODIUM SUCCINATE
     Indication: Premedication

REACTIONS (9)
  - Nausea [Not Recovered/Not Resolved]
  - Headache [Not Recovered/Not Resolved]
  - Pain [Not Recovered/Not Resolved]
  - Flushing [Not Recovered/Not Resolved]
  - Erythema [Not Recovered/Not Resolved]
  - Swelling [Not Recovered/Not Resolved]
  - Feeling hot [Not Recovered/Not Resolved]
  - Blood pressure increased [Not Recovered/Not Resolved]
  - Spinal pain [Not Recovered/Not Resolved]

NARRATIVE: CASE EVENT DATE: 20210406
